FAERS Safety Report 6252071-8 (Version None)
Quarter: 2009Q2

REPORT INFORMATION
  Report Type: 
  Country: None (occurrence: None)
  Receive Date: 20090630
  Receipt Date: 20071118
  Transmission Date: 20091009
  Serious: Yes (Hospitalization)
  Sender: FDA-Public Use
  Company Number: US-ROCHE-638764

PATIENT
  Sex: Male

DRUGS (13)
  1. ENFUVIRTIDE [Suspect]
     Route: 065
     Dates: start: 20030820, end: 20080225
  2. EPIVIR [Concomitant]
     Dates: start: 20030501, end: 20041025
  3. VIREAD [Concomitant]
     Dates: start: 20030501, end: 20041025
  4. ZIAGEN [Concomitant]
     Dates: start: 20030501, end: 20080225
  5. AGENERASE [Concomitant]
     Dates: start: 20030723, end: 20040225
  6. INVIRASE [Concomitant]
     Dates: start: 20030723, end: 20080225
  7. NORVIR [Concomitant]
     Dates: start: 20030723, end: 20080225
  8. LEXIVA [Concomitant]
     Dates: start: 20040225, end: 20080225
  9. TRUVADA [Concomitant]
     Dates: start: 20040225, end: 20080225
  10. BACTRIM [Concomitant]
     Dates: start: 19991123, end: 20040225
  11. DIFLUCAN [Concomitant]
     Dates: start: 20000222, end: 20041027
  12. DIFLUCAN [Concomitant]
     Dates: start: 20050103, end: 20060101
  13. LEVAQUIN [Concomitant]
     Dates: start: 20051022, end: 20051102

REACTIONS (1)
  - APPENDICITIS [None]
